FAERS Safety Report 23468169 (Version 3)
Quarter: 2025Q2

REPORT INFORMATION
  Report Type: Spontaneous
  Country: ES (occurrence: ES)
  Receive Date: 20240201
  Receipt Date: 20250501
  Transmission Date: 20250717
  Serious: Yes (Hospitalization, Other)
  Sender: AUROBINDO
  Company Number: ES-MLMSERVICE-20240115-4769264-1

PATIENT
  Age: 47 Year
  Sex: Female

DRUGS (22)
  1. FLUOXETINE [Interacting]
     Active Substance: FLUOXETINE HYDROCHLORIDE
     Indication: Adjustment disorder
     Dosage: 20 MILLIGRAM, ONCE A DAY
     Route: 048
     Dates: start: 20220504, end: 202205
  2. FLUOXETINE [Interacting]
     Active Substance: FLUOXETINE HYDROCHLORIDE
     Route: 048
     Dates: start: 20220504
  3. ACETAMINOPHEN\TRAMADOL [Suspect]
     Active Substance: ACETAMINOPHEN\TRAMADOL
     Indication: Groin pain
     Dosage: UNK, 3 TIMES A DAY
     Route: 065
  4. HALOPERIDOL [Interacting]
     Active Substance: HALOPERIDOL
     Indication: Vomiting
     Dosage: 5 MILLIGRAM, ONCE A DAY
     Route: 042
     Dates: start: 20220502, end: 202205
  5. METHADONE [Interacting]
     Active Substance: METHADONE HYDROCHLORIDE
     Indication: Cancer pain
     Dosage: 16 MILLIGRAM, TWO TIMES A DAY
     Route: 065
     Dates: start: 2022, end: 2022
  6. METHADONE [Interacting]
     Active Substance: METHADONE HYDROCHLORIDE
     Indication: Groin pain
     Dosage: 16 MILLIGRAM, ONCE A DAY
     Route: 065
     Dates: start: 20220509
  7. METHADONE [Interacting]
     Active Substance: METHADONE HYDROCHLORIDE
     Dosage: 12 MILLIGRAM, ONCE A DAY
     Route: 065
  8. METHADONE [Interacting]
     Active Substance: METHADONE HYDROCHLORIDE
     Dosage: 6 MILLIGRAM, TWO TIMES A DAY
     Route: 042
  9. ACETAMINOPHEN [Concomitant]
     Active Substance: ACETAMINOPHEN
     Indication: Product used for unknown indication
     Route: 065
  10. AMOXICILLIN\CLAVULANIC ACID [Concomitant]
     Active Substance: AMOXICILLIN\CLAVULANIC ACID
     Indication: Product used for unknown indication
     Route: 065
  11. CEFTRIAXONE [Concomitant]
     Active Substance: CEFTRIAXONE
     Indication: Product used for unknown indication
     Route: 065
  12. CISPLATIN [Concomitant]
     Active Substance: CISPLATIN
     Indication: Squamous cell carcinoma of the cervix
     Dosage: EEKLY CISPLATIN WITH RADICAL INTENTION
     Route: 065
     Dates: start: 2022
  13. CISPLATIN [Concomitant]
     Active Substance: CISPLATIN
     Indication: Squamous cell carcinoma
  14. DEXAMETHASONE [Concomitant]
     Active Substance: DEXAMETHASONE
     Indication: Product used for unknown indication
     Route: 065
  15. DIAZEPAM [Concomitant]
     Active Substance: DIAZEPAM
     Indication: Product used for unknown indication
     Route: 065
  16. ENOXAPARIN [Concomitant]
     Active Substance: ENOXAPARIN
     Indication: Product used for unknown indication
     Route: 065
  17. FENTANYL [Concomitant]
     Active Substance: FENTANYL
     Indication: Groin pain
     Route: 042
  18. BUTYLSCOPOLAMINE BROMIDE [Concomitant]
     Active Substance: BUTYLSCOPOLAMINE BROMIDE
     Indication: Product used for unknown indication
     Route: 065
  19. MORPHINE [Concomitant]
     Active Substance: MORPHINE
     Indication: Product used for unknown indication
     Route: 065
  20. OCTREOTIDE [Concomitant]
     Active Substance: OCTREOTIDE
     Indication: Product used for unknown indication
     Route: 065
  21. OMEPRAZOLE [Concomitant]
     Active Substance: OMEPRAZOLE
     Indication: Product used for unknown indication
     Route: 065
  22. ALBUTEROL [Concomitant]
     Active Substance: ALBUTEROL
     Indication: Product used for unknown indication
     Route: 065

REACTIONS (4)
  - Drug ineffective [Unknown]
  - Drug interaction [Recovered/Resolved]
  - Electrocardiogram QT prolonged [Recovered/Resolved]
  - Product use in unapproved indication [Unknown]

NARRATIVE: CASE EVENT DATE: 20220511
